FAERS Safety Report 8366569-X (Version None)
Quarter: 2012Q2

REPORT INFORMATION
  Report Type: 
  Country: None (occurrence: None)
  Receive Date: 20120516
  Receipt Date: 20120516
  Transmission Date: 20120825
  Serious: Yes (Life-Threatening, Hospitalization)
  Sender: FDA-Public Use
  Company Number: None

PATIENT
  Sex: Female
  Weight: 75.7507 kg

DRUGS (1)
  1. OPANA ER [Suspect]
     Indication: PAIN
     Dosage: 40MG EVERY 12 HRS TWICE DAILY Q12HRS
     Dates: start: 20110101, end: 20120101

REACTIONS (2)
  - PRODUCT COATING ISSUE [None]
  - PHARYNGEAL OEDEMA [None]
